FAERS Safety Report 4373874-0 (Version None)
Quarter: 2004Q2

REPORT INFORMATION
  Report Type: 
  Country: None (occurrence: None)
  Receive Date: 20040609
  Receipt Date: 20040601
  Transmission Date: 20050107
  Serious: Yes (Hospitalization)
  Sender: FDA-Public Use
  Company Number: GB-JNJFOC-20040505349

PATIENT
  Sex: Female

DRUGS (17)
  1. REMICADE [Suspect]
     Route: 042
  2. REMICADE [Suspect]
     Indication: RHEUMATOID ARTHRITIS
     Route: 042
  3. ARTHROTEC [Concomitant]
  4. ARTHROTEC [Concomitant]
  5. METHOTREXATE [Concomitant]
  6. FOLIC ACID [Concomitant]
  7. PREDNISOLONE [Concomitant]
  8. LOSEC [Concomitant]
  9. CO-PROXAMOL [Concomitant]
  10. CO-PROXAMOL [Concomitant]
  11. HRT [Concomitant]
  12. SERETIDE [Concomitant]
  13. SERETIDE [Concomitant]
  14. VENTOLIN [Concomitant]
  15. SOLAIRE [Concomitant]
  16. AMLODOPINE [Concomitant]
  17. ZOTON [Concomitant]

REACTIONS (3)
  - HAEMODIALYSIS [None]
  - MULTI-ORGAN FAILURE [None]
  - PNEUMOCOCCAL SEPSIS [None]
